FAERS Safety Report 18089561 (Version 1)
Quarter: 2020Q3

REPORT INFORMATION
  Report Type: Other
  Country: FR (occurrence: FR)
  Receive Date: 20200730
  Receipt Date: 20200730
  Transmission Date: 20201103
  Serious: Yes (Hospitalization)
  Sender: FDA-Public Use
  Company Number: FR-CADILA HEALTHCARE LIMITED-FR-ZYDUS-053826

PATIENT

DRUGS (14)
  1. VENLAFAXINE [Suspect]
     Active Substance: VENLAFAXINE HYDROCHLORIDE
     Indication: POISONING DELIBERATE
     Dosage: 3 DOSAGE FORM
     Route: 048
     Dates: start: 20140207, end: 20140207
  2. SERESTA [Suspect]
     Active Substance: OXAZEPAM
     Indication: PRODUCT USED FOR UNKNOWN INDICATION
     Dosage: 7.5 DOSAGE FORM
     Route: 048
     Dates: start: 20140207, end: 20140207
  3. DEPAKOTE [Suspect]
     Active Substance: DIVALPROEX SODIUM
     Indication: POISONING DELIBERATE
     Dosage: 9 DOSAGE FORM
     Route: 048
     Dates: start: 20140207, end: 20140207
  4. ANTARENE CODEINE [Suspect]
     Active Substance: CODEINE PHOSPHATE\IBUPROFEN
     Indication: POISONING DELIBERATE
     Dosage: 10 DOSAGE FORM
     Route: 048
     Dates: start: 20140207, end: 20140207
  5. FLUOXETINE [Suspect]
     Active Substance: FLUOXETINE HYDROCHLORIDE
     Indication: POISONING DELIBERATE
     Dosage: 6 DOSAGE FORM
     Route: 048
     Dates: start: 20140207, end: 20140207
  6. ABILIFY [Suspect]
     Active Substance: ARIPIPRAZOLE
     Indication: POISONING DELIBERATE
     Dosage: 3 DOSAGE FORM
     Route: 048
     Dates: start: 20140207, end: 20140207
  7. DOLIPRANE [Suspect]
     Active Substance: ACETAMINOPHEN
     Indication: POISONING DELIBERATE
     Dosage: 8 DOSAGE FORM
     Route: 048
     Dates: start: 20140207, end: 20140207
  8. LEVOTHYROX [Suspect]
     Active Substance: LEVOTHYROXINE
     Indication: POISONING DELIBERATE
     Dosage: 3 DOSAGE FORM
     Route: 048
     Dates: start: 20140207, end: 20140207
  9. TRIMEBUTINE [Suspect]
     Active Substance: TRIMEBUTINE
     Indication: POISONING DELIBERATE
     Route: 048
     Dates: start: 20140207, end: 20140207
  10. ESOMEPRAZOLE. [Suspect]
     Active Substance: ESOMEPRAZOLE MAGNESIUM
     Indication: POISONING DELIBERATE
     Dosage: 3 DOSAGE FORM
     Route: 048
     Dates: start: 20140207, end: 20140207
  11. TRANXENE [Suspect]
     Active Substance: CLORAZEPATE DIPOTASSIUM
     Indication: POISONING DELIBERATE
     Dosage: 9 DOSAGE FORM
     Route: 048
     Dates: start: 20140207, end: 20140207
  12. CYMBALTA [Suspect]
     Active Substance: DULOXETINE HYDROCHLORIDE
     Indication: POISONING DELIBERATE
     Dosage: 28 DOSAGE FORM
     Route: 048
     Dates: start: 20140207, end: 20140207
  13. DIPIPERON [Suspect]
     Active Substance: PIPAMPERONE
     Indication: POISONING DELIBERATE
     Dosage: 4.5 DOSAGE FORM
     Route: 048
     Dates: start: 20140207, end: 20140207
  14. HAVLANE [Suspect]
     Active Substance: LOPRAZOLAM
     Indication: POISONING DELIBERATE
     Dosage: 3 DOSAGE FORM
     Route: 048
     Dates: start: 20140207, end: 20140207

REACTIONS (1)
  - Coma [Recovered/Resolved]

NARRATIVE: CASE EVENT DATE: 20140207
